FAERS Safety Report 24236570 (Version 1)
Quarter: 2024Q3

REPORT INFORMATION
  Report Type: Report from Study
  Country: US (occurrence: US)
  Receive Date: 20240822
  Receipt Date: 20240822
  Transmission Date: 20241017
  Serious: Yes (Hospitalization, Other)
  Sender: JOHNSON AND JOHNSON
  Company Number: US-JNJFOC-20220917075

PATIENT
  Sex: Male

DRUGS (3)
  1. ABIRATERONE ACETATE [Suspect]
     Active Substance: ABIRATERONE ACETATE
     Indication: Prostate cancer metastatic
     Route: 048
  2. PREDNISONE [Suspect]
     Active Substance: PREDNISONE
     Indication: Prostate cancer metastatic
     Dosage: 5 MG X 2
     Route: 065
  3. OLAPARIB [Suspect]
     Active Substance: OLAPARIB
     Indication: Prostate cancer metastatic
     Route: 065

REACTIONS (30)
  - Fatigue [Unknown]
  - Anaemia [Unknown]
  - Hyperkalaemia [Unknown]
  - Alanine aminotransferase increased [Unknown]
  - Hypokalaemia [Unknown]
  - Pneumonia [Unknown]
  - Neoplasm malignant [Unknown]
  - Aspartate aminotransferase increased [Unknown]
  - Hypertension [Unknown]
  - Chest pain [Unknown]
  - Dyspnoea [Unknown]
  - Embolism [Unknown]
  - Nausea [Unknown]
  - Decreased appetite [Unknown]
  - Arthralgia [Unknown]
  - Constipation [Unknown]
  - Diarrhoea [Unknown]
  - Dysgeusia [Unknown]
  - Oedema peripheral [Unknown]
  - Gastrointestinal disorder [Unknown]
  - Headache [Unknown]
  - Hot flush [Unknown]
  - Pain [Unknown]
  - Skin disorder [Unknown]
  - Cough [Unknown]
  - Dizziness [Unknown]
  - Dry mouth [Unknown]
  - Dyspepsia [Unknown]
  - Hyperglycaemia [Unknown]
  - Angiopathy [Unknown]
